FAERS Safety Report 26181289 (Version 1)
Quarter: 2025Q4

REPORT INFORMATION
  Report Type: Spontaneous
  Country: EU (occurrence: EU)
  Receive Date: 20251221
  Receipt Date: 20251221
  Transmission Date: 20260117
  Serious: Yes (Other)
  Sender: PFIZER
  Company Number: None

PATIENT
  Sex: Female

DRUGS (7)
  1. CONTROLOC [Suspect]
     Active Substance: PANTOPRAZOLE SODIUM
     Dosage: 1 DF, 1X/DAY
     Route: 048
     Dates: start: 20251002, end: 20251002
  2. ANDOL [Suspect]
     Active Substance: ASPIRIN
     Dosage: 700 MG, 1X/DAY
     Route: 048
     Dates: start: 20251002, end: 20251002
  3. ANDOL [Suspect]
     Active Substance: ASPIRIN
     Dosage: 2100 MG, 1X/DAY
     Route: 048
     Dates: start: 20251002, end: 20251002
  4. INDAPAMIDE\PERINDOPRIL ERBUMINE [Suspect]
     Active Substance: INDAPAMIDE\PERINDOPRIL ERBUMINE
     Dosage: 7 DF, 1X/DAY
     Route: 048
     Dates: start: 20251002, end: 20251002
  5. ESCITALOPRAM OXALATE [Suspect]
     Active Substance: ESCITALOPRAM OXALATE
     Dosage: 70 MG, 1X/DAY
     Route: 048
     Dates: start: 20251002, end: 20251002
  6. QUETIAPINE [Suspect]
     Active Substance: QUETIAPINE
     Indication: Product used for unknown indication
     Dosage: 1 DF, 1X/DAY
     Route: 048
     Dates: start: 20251002, end: 20251002
  7. IBUPROFEN [Suspect]
     Active Substance: IBUPROFEN
     Dosage: 1 DF, 1X/DAY
     Route: 048
     Dates: start: 20251002, end: 20251002

REACTIONS (5)
  - Suicide attempt [Unknown]
  - Intentional overdose [Unknown]
  - Somnolence [Unknown]
  - Hypotension [Recovering/Resolving]
  - Extra dose administered [Unknown]

NARRATIVE: CASE EVENT DATE: 20251002
